FAERS Safety Report 4312184-4 (Version None)
Quarter: 2004Q1

REPORT INFORMATION
  Report Type: 
  Country: None (occurrence: None)
  Receive Date: 20040304
  Receipt Date: 20040304
  Transmission Date: 20041129
  Serious: No
  Sender: FDA-Public Use
  Company Number: None

PATIENT
  Age: 8 Year
  Sex: Male
  Weight: 28.5766 kg

DRUGS (1)
  1. VERRUCA FREEZE CRYOSURGERY, INC [Suspect]
     Indication: SKIN PAPILLOMA
     Dosage: TOPICAL
     Route: 061
     Dates: start: 20031016, end: 20031016

REACTIONS (6)
  - COLD EXPOSURE INJURY [None]
  - MEDICAL DEVICE COMPLICATION [None]
  - PAIN [None]
  - SCAR [None]
  - TEMPERATURE INTOLERANCE [None]
  - THERMAL BURN [None]
